FAERS Safety Report 8548617 (Version 2)
Quarter: 2012Q4

REPORT INFORMATION
  Report Type: 
  Country: US (occurrence: US)
  Receive Date: 20120507
  Receipt Date: 20120903
  Transmission Date: 20130627
  Serious: Yes (Hospitalization, Other)
  Sender: FDA-Public Use
  Company Number: US-BAYER-2012-042995

PATIENT
  Age: 44 Year
  Sex: Female
  Weight: 82 kg

DRUGS (12)
  1. YAZ [Suspect]
     Indication: CONTRACEPTION
     Dosage: UNK
     Dates: start: 20070803, end: 20071028
  2. YAZ [Suspect]
     Indication: ACNE
  3. YAZ [Suspect]
     Indication: PREMENSTRUAL SYNDROME
  4. WELLBUTRIN [Concomitant]
  5. PROZAC [Concomitant]
  6. LOESTRIN [Concomitant]
     Dosage: UNK
     Dates: start: 200708
  7. BUPROPION [Concomitant]
     Indication: ANXIETY
     Dosage: 150 mg, UNK
     Dates: start: 2005
  8. FLUOXETINE [Concomitant]
     Indication: ANXIETY
     Dosage: 20 mg, UNK
     Dates: start: 2001
  9. ZOLPIDEM [Concomitant]
     Dosage: 10 mg, UNK
  10. DIETARY SUPPLEMENT [Concomitant]
  11. IBUPROFEN [Concomitant]
  12. ASPIRIN [Concomitant]

REACTIONS (6)
  - Pulmonary embolism [None]
  - Injury [None]
  - Pain [None]
  - Headache [None]
  - Transverse sinus thrombosis [None]
  - Intracranial venous sinus thrombosis [None]
